FAERS Safety Report 18283657 (Version 1)
Quarter: 2020Q3

REPORT INFORMATION
  Report Type: Report from Study
  Country: US (occurrence: US)
  Receive Date: 20200918
  Receipt Date: 20200918
  Transmission Date: 20201103
  Serious: Yes (Death, Hospitalization)
  Sender: FDA-Public Use
  Company Number: US-BIOGEN-2020BI00922692

PATIENT
  Sex: Female

DRUGS (1)
  1. TECFIDERA [Suspect]
     Active Substance: DIMETHYL FUMARATE
     Indication: MULTIPLE SCLEROSIS
     Dosage: MAINTENANCE DOSE
     Route: 065
     Dates: start: 20140826, end: 20200609

REACTIONS (6)
  - Multiple sclerosis [Fatal]
  - Intestinal obstruction [Fatal]
  - Unresponsive to stimuli [Unknown]
  - Acute kidney injury [Fatal]
  - Urinary tract infection [Fatal]
  - Poisoning [Fatal]
